FAERS Safety Report 4632818-4 (Version None)
Quarter: 2005Q2

REPORT INFORMATION
  Report Type: 
  Country: None (occurrence: None)
  Receive Date: 20050325
  Receipt Date: 20041216
  Transmission Date: 20051028
  Serious: No
  Sender: FDA-Public Use
  Company Number: USA041286364

PATIENT

DRUGS (1)
  1. FORTEO [Suspect]
     Indication: OSTEOPOROSIS
     Dosage: 20 UG/1 DAY
     Dates: start: 20030501

REACTIONS (6)
  - FALL [None]
  - LIMB INJURY [None]
  - OEDEMA PERIPHERAL [None]
  - RASH SCALY [None]
  - VENOUS INSUFFICIENCY [None]
  - WEIGHT DECREASED [None]
